FAERS Safety Report 12177362 (Version 1)
Quarter: 2016Q1

REPORT INFORMATION
  Report Type: Report from Study
  Country: US (occurrence: US)
  Receive Date: 20160314
  Receipt Date: 20160314
  Transmission Date: 20160526
  Serious: Yes (Other)
  Sender: FDA-Public Use
  Company Number: US-ABBVIE-16K-163-1578268-00

PATIENT
  Sex: Male

DRUGS (1)
  1. HUMIRA [Suspect]
     Active Substance: ADALIMUMAB
     Indication: RHEUMATOID ARTHRITIS
     Route: 058

REACTIONS (8)
  - Headache [Unknown]
  - Exostosis [Unknown]
  - Vision blurred [Unknown]
  - Neck pain [Unknown]
  - Confusional state [Unknown]
  - Balance disorder [Unknown]
  - Loss of consciousness [Unknown]
  - Dizziness [Unknown]
